FAERS Safety Report 9787200 (Version 1)
Quarter: 2013Q4

REPORT INFORMATION
  Report Type: Spontaneous
  Country: JP (occurrence: JP)
  Receive Date: 20131229
  Receipt Date: 20131229
  Transmission Date: 20140711
  Serious: Yes (Death, Other)
  Sender: FDA-Public Use
  Company Number: JP-CELGENEUS-087-50794-13124692

PATIENT
  Sex: 0

DRUGS (5)
  1. VIDAZA [Suspect]
     Indication: MYELODYSPLASTIC SYNDROME
     Route: 041
  2. ANTIBIOTICS [Concomitant]
     Indication: PROPHYLAXIS
     Route: 065
  3. GRANULOCYTE COLONY-STIMULATING FACTOR NOS [Concomitant]
     Indication: PROPHYLAXIS
     Route: 065
  4. IDARUBICINE [Concomitant]
     Indication: MYELODYSPLASTIC SYNDROME
     Route: 065
  5. ACLARUBICINE [Concomitant]
     Indication: MYELODYSPLASTIC SYNDROME
     Route: 065

REACTIONS (5)
  - Myelodysplastic syndrome [Fatal]
  - Blast cell count increased [Fatal]
  - Infection [Fatal]
  - Treatment failure [Unknown]
  - Acute lymphocytic leukaemia [Unknown]
